FAERS Safety Report 23741179 (Version 2)
Quarter: 2024Q2

REPORT INFORMATION
  Report Type: Report from Study
  Country: ES (occurrence: ES)
  Receive Date: 20240415
  Receipt Date: 20240419
  Transmission Date: 20240716
  Serious: Yes (Hospitalization, Other)
  Sender: FDA-Public Use
  Company Number: ES-ABBVIE-5715705

PATIENT
  Sex: Male
  Weight: 75 kg

DRUGS (2)
  1. CARBIDOPA\LEVODOPA [Suspect]
     Active Substance: CARBIDOPA\LEVODOPA
     Indication: Parkinson^s disease
     Route: 050
     Dates: start: 20180802
  2. CARBIDOPA\LEVODOPA [Suspect]
     Active Substance: CARBIDOPA\LEVODOPA

REACTIONS (11)
  - Food refusal [Not Recovered/Not Resolved]
  - Haematochezia [Recovered/Resolved]
  - Disorientation [Unknown]
  - Diarrhoea [Recovered/Resolved]
  - Feeding disorder [Not Recovered/Not Resolved]
  - Rectal haemorrhage [Recovered/Resolved]
  - Vomiting [Recovered/Resolved]
  - Confusional state [Not Recovered/Not Resolved]
  - Aggression [Unknown]
  - Diarrhoea [Unknown]
  - Clostridial infection [Unknown]

NARRATIVE: CASE EVENT DATE: 20240101
